FAERS Safety Report 17028383 (Version 1)
Quarter: 2019Q4

REPORT INFORMATION
  Report Type: Spontaneous
  Country: US (occurrence: US)
  Receive Date: 20191113
  Receipt Date: 20191113
  Transmission Date: 20200122
  Serious: No
  Sender: FDA-Public Use
  Company Number: NVSC2019US034327

PATIENT
  Sex: Male

DRUGS (1)
  1. ENTRESTO [Suspect]
     Active Substance: SACUBITRIL\VALSARTAN
     Indication: CARDIAC FAILURE
     Dosage: 200 MG, UNKNOWN (97/103)
     Route: 065
     Dates: start: 2017

REACTIONS (2)
  - Brain natriuretic peptide increased [Recovered/Resolved]
  - Fluid retention [Recovered/Resolved]
